FAERS Safety Report 8616699 (Version 2)
Quarter: 2013Q3

REPORT INFORMATION
  Report Type: Spontaneous
  Country: CA (occurrence: None)
  Receive Date: 20120601
  Receipt Date: 20130911
  Transmission Date: 20140515
  Serious: Yes (Hospitalization)
  Sender: FDA-Public Use
  Company Number: 2012000124

PATIENT
  Age: 46 Year
  Sex: Female

DRUGS (3)
  1. ACEON [Suspect]
     Indication: HYPERTENSION
     Dosage: 4 MG, QD, ORAL, 8 MG, QD, ORAL
     Route: 048
     Dates: start: 2012, end: 2012
  2. GILENYA [Suspect]
     Indication: MULTIPLE SCLEROSIS
     Route: 048
     Dates: start: 201110, end: 201205
  3. CELEXA [Concomitant]

REACTIONS (11)
  - Chest pain [None]
  - Hypertension [None]
  - Drug ineffective [None]
  - Feeling drunk [None]
  - Hypersensitivity [None]
  - Malaise [None]
  - Migraine [None]
  - Dizziness [None]
  - Pyrexia [None]
  - Headache [None]
  - Sciatica [None]
